FAERS Safety Report 6714180-6 (Version None)
Quarter: 2010Q2

REPORT INFORMATION
  Report Type: 
  Country: None (occurrence: None)
  Receive Date: 20100506
  Receipt Date: 20100427
  Transmission Date: 20101027
  Serious: Yes (Hospitalization, Other)
  Sender: FDA-Public Use
  Company Number: US-ABBOTT-10P-163-0634860-00

PATIENT
  Sex: Male

DRUGS (5)
  1. ADVICOR [Suspect]
     Indication: BLOOD CHOLESTEROL INCREASED
     Dosage: 500/20MG
     Dates: start: 20090101, end: 20100325
  2. ADVICOR [Suspect]
     Dosage: 500/20MG DAILY
     Dates: start: 20100425
  3. ALTACE [Concomitant]
     Indication: STENT PLACEMENT
  4. FLOMAX [Concomitant]
     Indication: PROSTATOMEGALY
     Dosage: UNKNOWN
  5. ASPIRIN [Concomitant]
     Indication: STENT PLACEMENT

REACTIONS (8)
  - ABDOMINAL PAIN [None]
  - BREAST ENLARGEMENT [None]
  - BREAST PAIN [None]
  - CHEST PAIN [None]
  - CONSTIPATION [None]
  - FLUSHING [None]
  - INGUINAL HERNIA [None]
  - VOMITING [None]
